FAERS Safety Report 13405466 (Version 3)
Quarter: 2017Q2

REPORT INFORMATION
  Report Type: Spontaneous
  Country: US (occurrence: US)
  Receive Date: 20170405
  Receipt Date: 20170619
  Transmission Date: 20170830
  Serious: No
  Sender: FDA-Public Use
  Company Number: US-PFIZER INC-2017140462

PATIENT
  Age: 55 Year
  Sex: Female
  Weight: 77.11 kg

DRUGS (6)
  1. CORTEF [Suspect]
     Active Substance: HYDROCORTISONE
     Dosage: 30 MG, AS NEEDED (30 MG AND STRETCHED AS NEEDED)
  2. CORTEF [Suspect]
     Active Substance: HYDROCORTISONE
     Dosage: UNK
  3. HYDROCORTISONE. [Suspect]
     Active Substance: HYDROCORTISONE
     Dosage: UNK
  4. CORTEF [Suspect]
     Active Substance: HYDROCORTISONE
     Dosage: UNK (TIMES A DAY; I START AT 10 MG WHEN I)
     Dates: start: 2010
  5. CORTEF [Suspect]
     Active Substance: HYDROCORTISONE
     Indication: ADRENAL INSUFFICIENCY
     Dosage: 30 MG, DAILY
  6. HYDROCORTISONE. [Suspect]
     Active Substance: HYDROCORTISONE
     Dosage: UNK

REACTIONS (8)
  - Malaise [Recovering/Resolving]
  - Intentional product misuse [Unknown]
  - Nausea [Recovering/Resolving]
  - Headache [Recovering/Resolving]
  - Cortisol abnormal [Recovering/Resolving]
  - Feeling abnormal [Unknown]
  - Drug ineffective [Unknown]
  - Hyperacusis [Recovering/Resolving]

NARRATIVE: CASE EVENT DATE: 20170326
